FAERS Safety Report 6087500-6 (Version None)
Quarter: 2009Q1

REPORT INFORMATION
  Report Type: 
  Country: None (occurrence: None)
  Receive Date: 20090218
  Receipt Date: 20090218
  Transmission Date: 20090719
  Serious: No
  Sender: FDA-Public Use
  Company Number: None

PATIENT
  Sex: Female
  Weight: 77.1115 kg

DRUGS (6)
  1. AVAPRO [Suspect]
     Indication: HYPERTENSION
     Dosage: 150 MG DAILY PO
     Route: 048
     Dates: start: 20080801, end: 20090217
  2. LIPITOR [Concomitant]
  3. TOPROL-XL [Concomitant]
  4. ACIPHEX [Concomitant]
  5. NASONEX [Concomitant]
  6. CLARITIN [Concomitant]

REACTIONS (1)
  - ARTHRITIS [None]
